FAERS Safety Report 4308425-X (Version None)
Quarter: 2004Q1

REPORT INFORMATION
  Report Type: 
  Country: None (occurrence: None)
  Receive Date: 20040225
  Receipt Date: 20030429
  Transmission Date: 20041129
  Serious: Yes (Disabling)
  Sender: FDA-Public Use
  Company Number: WAES 0209USA00992

PATIENT
  Age: 90 Year
  Sex: Male

DRUGS (1)
  1. ZOCOR [Suspect]
     Dosage: 20 MG/ DAILY/ PO
     Route: 048
     Dates: start: 19970101, end: 19990101

REACTIONS (7)
  - ASTHENIA [None]
  - DISORIENTATION [None]
  - DISTURBANCE IN ATTENTION [None]
  - GENERAL PHYSICAL HEALTH DETERIORATION [None]
  - MEMORY IMPAIRMENT [None]
  - MUSCLE ATROPHY [None]
  - NAUSEA [None]
